FAERS Safety Report 18763802 (Version 2)
Quarter: 2021Q1

REPORT INFORMATION
  Report Type: Spontaneous
  Country: US (occurrence: US)
  Receive Date: 20210120
  Receipt Date: 20210125
  Transmission Date: 20210419
  Serious: Yes (Other)
  Sender: FDA-Public Use
  Company Number: US-PFIZER INC-2021018928

PATIENT
  Age: 71 Year
  Sex: Female

DRUGS (2)
  1. CELECOXIB. [Suspect]
     Active Substance: CELECOXIB
     Dosage: UNK
  2. SERTRALINE HCL [Suspect]
     Active Substance: SERTRALINE HYDROCHLORIDE
     Indication: DEPRESSION
     Dosage: UNK

REACTIONS (5)
  - Glomerulonephritis minimal lesion [Recovering/Resolving]
  - Acute kidney injury [Recovering/Resolving]
  - Renal tubular atrophy [Recovering/Resolving]
  - Kidney fibrosis [Recovering/Resolving]
  - Nephrotic syndrome [Recovering/Resolving]
